FAERS Safety Report 9641142 (Version 1)
Quarter: 2013Q4

REPORT INFORMATION
  Report Type: Report from Study
  Country: JP (occurrence: JP)
  Receive Date: 20131023
  Receipt Date: 20131023
  Transmission Date: 20140711
  Serious: Yes (Death, Life-Threatening, Hospitalization)
  Sender: FDA-Public Use
  Company Number: JP-SA-2013SA106421

PATIENT
  Age: 57 Year
  Sex: Female
  Weight: 57.4 kg

DRUGS (9)
  1. THYMOGLOBULIN [Suspect]
     Indication: ACUTE GRAFT VERSUS HOST DISEASE
     Route: 042
     Dates: start: 20111125, end: 20111125
  2. JUVELA [Concomitant]
     Indication: PRURITUS
     Dates: start: 20111116, end: 20111206
  3. DOPAMINE HYDROCHLORIDE [Concomitant]
     Indication: SEPTIC SHOCK
     Dates: start: 20111117, end: 20111206
  4. GEBEN [Concomitant]
     Indication: ULCER
     Dates: start: 20111121, end: 20111206
  5. POLARAMINE [Concomitant]
     Indication: PROPHYLAXIS
     Dates: start: 20111125, end: 20111125
  6. PRIDOL [Concomitant]
     Indication: GRAFT VERSUS HOST DISEASE
     Dates: start: 20111125, end: 20111125
  7. HUMULIN R [Concomitant]
     Indication: HYPERGLYCAEMIA
     Dates: start: 20111126, end: 20111206
  8. DIPHENHYDRAMINE [Concomitant]
     Indication: PRURITUS
     Dates: start: 20111126, end: 20111206
  9. BUMINATE [Concomitant]
     Indication: HYPOALBUMINAEMIA
     Dates: start: 20111128, end: 20111203

REACTIONS (6)
  - Blood pressure decreased [Not Recovered/Not Resolved]
  - Convulsion [Not Recovered/Not Resolved]
  - Acidosis [Not Recovered/Not Resolved]
  - Sepsis [Not Recovered/Not Resolved]
  - Graft versus host disease [Fatal]
  - Cardiac failure acute [Recovered/Resolved]
